FAERS Safety Report 7118476-8 (Version None)
Quarter: 2010Q4

REPORT INFORMATION
  Report Type: 
  Country: None (occurrence: None)
  Receive Date: 20101123
  Receipt Date: 20101115
  Transmission Date: 20110411
  Serious: Yes (Hospitalization)
  Sender: FDA-Public Use
  Company Number: FR-MPIJNJ-2010-05505

PATIENT

DRUGS (8)
  1. VELCADE [Suspect]
     Indication: MULTIPLE MYELOMA
     Dosage: 1.0 MG/M2, CYCLIC
     Route: 042
     Dates: start: 20100427, end: 20100903
  2. DEXAMETHASONE [Suspect]
     Indication: MULTIPLE MYELOMA
     Dosage: 40 MG, UNK
     Route: 042
     Dates: start: 20100427, end: 20100903
  3. ZELITREX                           /01269701/ [Concomitant]
     Indication: HERPES VIRUS INFECTION
     Dosage: 500 MG, UNK
     Dates: start: 20100601
  4. LAROXYL [Concomitant]
     Indication: DEPRESSION
     Dosage: 40 MG, UNK
     Dates: start: 20100601
  5. PARIET [Concomitant]
     Indication: GASTROOESOPHAGEAL REFLUX DISEASE
     Dosage: 10 MG, UNK
  6. LACTULOSE [Concomitant]
     Indication: CONSTIPATION
     Dosage: 10 G, UNK
  7. DUPHALAC [Concomitant]
  8. VALACICLOVIR [Concomitant]

REACTIONS (2)
  - HYPOTENSION [None]
  - OESOPHAGITIS [None]
